FAERS Safety Report 15757351 (Version 1)
Quarter: 2018Q4

REPORT INFORMATION
  Report Type: Spontaneous
  Country: US (occurrence: US)
  Receive Date: 20181224
  Receipt Date: 20181224
  Transmission Date: 20190205
  Serious: Yes (Hospitalization)
  Sender: FDA-Public Use
  Company Number: None

PATIENT
  Age: 68 Year
  Sex: Female

DRUGS (7)
  1. MESALAMINE. [Concomitant]
     Active Substance: MESALAMINE
  2. DICLOFENAC [Concomitant]
     Active Substance: DICLOFENAC
  3. VALSART [Concomitant]
     Active Substance: VALSARTAN
  4. HUMIRA [Suspect]
     Active Substance: ADALIMUMAB
     Indication: CROHN^S DISEASE
     Dosage: ?          OTHER FREQUENCY:ONCE EVERY 2 WEEKS;OTHER ROUTE:INJECT AS DIRECTED?
     Dates: start: 20150622
  5. CRESTOR [Concomitant]
     Active Substance: ROSUVASTATIN CALCIUM
  6. FLAGYL [Concomitant]
     Active Substance: METRONIDAZOLE\METRONIDAZOLE HYDROCHLORIDE
  7. OLMESA MEDOX [Concomitant]

REACTIONS (2)
  - Oral surgery [None]
  - Therapy cessation [None]

NARRATIVE: CASE EVENT DATE: 20181210
